FAERS Safety Report 8987998 (Version 1)
Quarter: 2012Q4

REPORT INFORMATION
  Report Type: 
  Country: US (occurrence: US)
  Receive Date: 20121227
  Receipt Date: 20121227
  Transmission Date: 20130627
  Serious: Yes (Other)
  Sender: FDA-Public Use
  Company Number: US-TEVA-377752USA

PATIENT
  Age: 39 Year
  Sex: Female

DRUGS (6)
  1. COPAXONE [Suspect]
     Indication: MULTIPLE SCLEROSIS
     Dosage: 20 Milligram Daily;
     Route: 058
  2. LYRICA [Concomitant]
     Dosage: 100 Milligram Daily;
     Route: 048
  3. BACLOFEN [Concomitant]
     Dosage: 10 Milligram Daily;
     Route: 048
  4. LISINOPRIL [Concomitant]
     Indication: HYPERTENSION
     Dosage: 10 Milligram Daily;
     Route: 048
  5. ENABLEX [Concomitant]
     Dosage: 7.5 Milligram Daily;
     Route: 048
  6. LOESTRIN [Concomitant]
     Route: 048

REACTIONS (6)
  - Immediate post-injection reaction [Recovered/Resolved]
  - Palpitations [Recovered/Resolved]
  - Loss of consciousness [Recovered/Resolved]
  - Fall [Recovered/Resolved]
  - Head injury [Recovered/Resolved]
  - Flushing [Recovered/Resolved]
